FAERS Safety Report 25213817 (Version 1)
Quarter: 2025Q2

REPORT INFORMATION
  Report Type: Spontaneous
  Country: US (occurrence: None)
  Receive Date: 20250417
  Receipt Date: 20250417
  Transmission Date: 20250717
  Serious: Yes (Other)
  Sender: FDA-CTU
  Company Number: None

PATIENT
  Age: 64 Year
  Sex: Female
  Weight: 49.5 kg

DRUGS (2)
  1. FAMOTIDINE [Suspect]
     Active Substance: FAMOTIDINE
     Indication: Gastrooesophageal reflux disease
     Dosage: 30 TABLETS AT BEDTIME ORAL
     Route: 048
     Dates: start: 20250408, end: 20250412
  2. ESTRADIOL [Concomitant]
     Active Substance: ESTRADIOL

REACTIONS (3)
  - Dysphagia [None]
  - Oropharyngeal pain [None]
  - Muscle spasms [None]

NARRATIVE: CASE EVENT DATE: 20250412
